FAERS Safety Report 9120114 (Version 3)
Quarter: 2013Q3

REPORT INFORMATION
  Report Type: Report from Study
  Country: CO (occurrence: CO)
  Receive Date: 20130226
  Receipt Date: 20130815
  Transmission Date: 20140515
  Serious: Yes (Hospitalization)
  Sender: FDA-Public Use
  Company Number: CO-ELI_LILLY_AND_COMPANY-CO201302005773

PATIENT
  Age: 41 Year
  Sex: Female

DRUGS (2)
  1. LISPRO REGLISPRO [Suspect]
     Indication: GESTATIONAL DIABETES
     Dosage: UNK
     Route: 058
     Dates: start: 20130121
  2. HUMULIN NPH [Suspect]
     Indication: GESTATIONAL DIABETES
     Dosage: UNK
     Route: 058
     Dates: start: 20130204

REACTIONS (3)
  - Urinary tract infection [Unknown]
  - Maternal exposure during pregnancy [Not Recovered/Not Resolved]
  - Blood glucose abnormal [Unknown]
